FAERS Safety Report 8915461 (Version 1)
Quarter: 2012Q4

REPORT INFORMATION
  Report Type: 
  Country: US (occurrence: US)
  Receive Date: 20121119
  Receipt Date: 20121119
  Transmission Date: 20130627
  Serious: Yes (Other)
  Sender: FDA-Public Use
  Company Number: US-PFIZER INC-2012286804

PATIENT
  Age: 56 Year
  Sex: Female

DRUGS (4)
  1. LYRICA [Suspect]
     Dosage: 75 UNK 2x/day
  2. LYRICA [Suspect]
     Dosage: 100, 3x/day
  3. ATIVAN [Suspect]
     Dosage: UNK
  4. PAXIL [Suspect]
     Dosage: UNK, on and off

REACTIONS (1)
  - Suicidal ideation [Unknown]
